FAERS Safety Report 11119644 (Version 6)
Quarter: 2015Q4

REPORT INFORMATION
  Report Type: Report from Study
  Country: EC (occurrence: EC)
  Receive Date: 20150518
  Receipt Date: 20151210
  Transmission Date: 20160304
  Serious: Yes (Hospitalization)
  Sender: FDA-Public Use
  Company Number: PHHY2015EC058782

PATIENT
  Age: 10 Year
  Sex: Female
  Weight: 24 kg

DRUGS (3)
  1. EXJADE [Suspect]
     Active Substance: DEFERASIROX
     Dosage: 500 MG, QD
     Route: 048
     Dates: start: 20140717
  2. EXJADE [Suspect]
     Active Substance: DEFERASIROX
     Dosage: 750 MG, QD
     Route: 048
     Dates: start: 20151201
  3. EXJADE [Suspect]
     Active Substance: DEFERASIROX
     Indication: SICKLE CELL ANAEMIA
     Dosage: 250 MG, QD
     Route: 048
     Dates: start: 20120601

REACTIONS (8)
  - Thermal burn [Not Recovered/Not Resolved]
  - Serum ferritin increased [Unknown]
  - Red blood cell count decreased [Unknown]
  - Blood iron increased [Recovered/Resolved]
  - Decreased immune responsiveness [Recovered/Resolved]
  - Asthenia [Unknown]
  - Haematocrit decreased [Recovered/Resolved]
  - Pain in extremity [Unknown]

NARRATIVE: CASE EVENT DATE: 2015
